FAERS Safety Report 14969861 (Version 2)
Quarter: 2018Q3

REPORT INFORMATION
  Report Type: Spontaneous
  Country: US (occurrence: US)
  Receive Date: 20180604
  Receipt Date: 20180720
  Transmission Date: 20181010
  Serious: No
  Sender: FDA-Public Use
  Company Number: US-LEO PHARMA-309185

PATIENT
  Age: 76 Year
  Sex: Female

DRUGS (1)
  1. PICATO [Suspect]
     Active Substance: INGENOL MEBUTATE
     Indication: ACTINIC KERATOSIS
     Route: 061
     Dates: start: 20180529, end: 20180531

REACTIONS (4)
  - Eyelid irritation [Recovered/Resolved]
  - Application site pain [Recovered/Resolved]
  - Application site erythema [Recovered/Resolved]
  - Application site exfoliation [Recovered/Resolved]

NARRATIVE: CASE EVENT DATE: 20180529
